FAERS Safety Report 7874605-X (Version None)
Quarter: 2011Q4

REPORT INFORMATION
  Report Type: 
  Country: None (occurrence: None)
  Receive Date: 20111031
  Receipt Date: 20111025
  Transmission Date: 20120403
  Serious: Yes (Hospitalization)
  Sender: FDA-Public Use
  Company Number: IT-PFIZER INC-2011236134

PATIENT
  Age: 66 Year
  Sex: Female

DRUGS (5)
  1. CORTISONE ACETATE [Concomitant]
     Dosage: 25 MG, UNK
     Route: 048
  2. LEVOTHYROXINE SODIUM [Concomitant]
     Dosage: 100 UG, UNK
     Route: 048
  3. GENOTROPIN [Suspect]
     Indication: GROWTH HORMONE DEFICIENCY
     Dosage: 0.5 MG, ALTERNATE DAY
     Route: 058
     Dates: start: 19940309, end: 20110919
  4. CALCIUM CARBONATE/COLECALCIFEROL [Concomitant]
     Dosage: 500 MG, UNK
     Route: 048
  5. COLECALCIFEROL [Concomitant]
     Dosage: 300000 IU, UNK

REACTIONS (2)
  - CENTRAL NERVOUS SYSTEM LESION [None]
  - DYSARTHRIA [None]
